FAERS Safety Report 6607094-3 (Version None)
Quarter: 2010Q1

REPORT INFORMATION
  Report Type: 
  Country: None (occurrence: None)
  Receive Date: 20100219
  Receipt Date: 20100205
  Transmission Date: 20100710
  Serious: Yes (Hospitalization)
  Sender: FDA-Public Use
  Company Number: 008863

PATIENT
  Sex: Male

DRUGS (1)
  1. SAMSCA [Suspect]
     Dosage: 15 MG, SINGLE, ORAL, 7.5 MG, DAILY DOSE, ORAL
     Route: 048

REACTIONS (1)
  - BLOOD SODIUM INCREASED [None]
